FAERS Safety Report 13717318 (Version 1)
Quarter: 2017Q3

REPORT INFORMATION
  Report Type: Spontaneous
  Country: FR (occurrence: FR)
  Receive Date: 20170705
  Receipt Date: 20170705
  Transmission Date: 20171127
  Serious: Yes (Hospitalization, Other)
  Sender: FDA-Public Use
  Company Number: FR-BAXTER-2017BAX026418

PATIENT
  Age: 0 Day
  Sex: Male

DRUGS (17)
  1. METHOTREXATE. [Suspect]
     Active Substance: METHOTREXATE
     Dosage: ON DAY32 OF EMBRYONIC LIFE,MOTHER DOSE: 20MG PER WEEK FOR INFLAMMATORY DISEASE WEGENER LIKE
     Route: 064
     Dates: start: 20160910
  2. DIFFU K [Suspect]
     Active Substance: POTASSIUM CHLORIDE
     Indication: FOETAL EXPOSURE DURING PREGNANCY
     Route: 064
  3. METHOTREXATE. [Suspect]
     Active Substance: METHOTREXATE
     Dosage: ON DAY18 OF EMBRYONIC LIFE,MOTHER DOSE: 20MG PER WEEK FOR INFLAMMATORY DISEASE WEGENER LIKE
     Route: 064
     Dates: start: 20160827
  4. BACTRIM [Suspect]
     Active Substance: SULFAMETHOXAZOLE\TRIMETHOPRIM
     Indication: FOETAL EXPOSURE DURING PREGNANCY
     Route: 064
  5. ENDOXAN 1000 MG, POUDRE POUR SOLUTION INJECTABLE [Suspect]
     Active Substance: CYCLOPHOSPHAMIDE
     Dosage: SECOND COURSE, MOTHER DOSE: 600MG/M2(900MG) FOR INFLAMMATORY DISEASE WEGENER LIKE
     Route: 064
     Dates: start: 20161219
  6. METHOTREXATE. [Suspect]
     Active Substance: METHOTREXATE
     Dosage: ON DAY25 OF EMBRYONIC LIFE,MOTHER DOSE: 20MG PER WEEK FOR INFLAMMATORY DISEASE WEGENER LIKE
     Route: 064
     Dates: start: 20160903
  7. LANSOPRAZOLE. [Suspect]
     Active Substance: LANSOPRAZOLE
     Indication: FOETAL EXPOSURE DURING PREGNANCY
     Route: 064
  8. ENDOXAN 1000 MG, POUDRE POUR SOLUTION INJECTABLE [Suspect]
     Active Substance: CYCLOPHOSPHAMIDE
     Indication: FOETAL EXPOSURE DURING PREGNANCY
     Dosage: FIRST COURSE, MOTHER DOSE: 600MG/M2(900MG) FOR INFLAMMATORY DISEASE WEGENER LIKE
     Route: 064
     Dates: start: 20161202
  9. METHOTREXATE. [Suspect]
     Active Substance: METHOTREXATE
     Dosage: ON DAY11 OF EMBRYONIC LIFE,MOTHER DOSE: 20MG PER WEEK FOR INFLAMMATORY DISEASE WEGENER LIKE
     Route: 064
     Dates: start: 20160820
  10. UROMITEXAN 5 G/50 ML, SOLUTION INJECTABLE POUR PERFUSION EN FLACON [Suspect]
     Active Substance: MESNA
     Indication: FOETAL EXPOSURE DURING PREGNANCY
     Route: 064
  11. ENDOXAN 1000 MG, POUDRE POUR SOLUTION INJECTABLE [Suspect]
     Active Substance: CYCLOPHOSPHAMIDE
     Dosage: FOURTH COURSE, MOTHER DOSE: 600MG/M2(900MG) FOR INFLAMMATORY DISEASE WEGENER LIKE
     Route: 064
     Dates: start: 20170210
  12. METHOTREXATE. [Suspect]
     Active Substance: METHOTREXATE
     Indication: FOETAL EXPOSURE DURING PREGNANCY
     Dosage: ON DAY4 OF EMBRYONIC LIFE,MOTHER DOSE: 20MG PER WEEK FOR INFLAMMATORY DISEASE WEGENER LIKE
     Route: 064
     Dates: start: 20160813
  13. SPECIAFOLDINE [Suspect]
     Active Substance: FOLIC ACID
     Indication: FOETAL EXPOSURE DURING PREGNANCY
     Route: 064
  14. ENDOXAN 1000 MG, POUDRE POUR SOLUTION INJECTABLE [Suspect]
     Active Substance: CYCLOPHOSPHAMIDE
     Dosage: THIRD COURSE, MOTHER DOSE: 600MG/M2(900MG) FOR INFLAMMATORY DISEASE WEGENER LIKE
     Route: 064
     Dates: start: 20170106
  15. IMUREL [Suspect]
     Active Substance: AZATHIOPRINE SODIUM
     Indication: FOETAL EXPOSURE DURING PREGNANCY
     Dosage: MOTHER DOSE: 125MG DAILY FOR INFLAMMATORY DISEASE WEGENER LIKE
     Route: 064
  16. PREDNISONE. [Suspect]
     Active Substance: PREDNISONE
     Indication: FOETAL EXPOSURE DURING PREGNANCY
     Dosage: MOTHER DOSE: 30MG, DAILY FOR INFLAMMATORY DISEASE WEGENER LIKE
     Route: 064
  17. ENDOXAN 1000 MG, POUDRE POUR SOLUTION INJECTABLE [Suspect]
     Active Substance: CYCLOPHOSPHAMIDE
     Dosage: FIFTH COURSE, MOTHER DOSE: 600MG/M2(900MG) FOR INFLAMMATORY DISEASE WEGENER LIKE
     Route: 064
     Dates: start: 20170314

REACTIONS (3)
  - Foetal malnutrition [Recovering/Resolving]
  - Premature baby [Recovered/Resolved]
  - Foetal exposure during pregnancy [Recovered/Resolved]

NARRATIVE: CASE EVENT DATE: 20170329
